FAERS Safety Report 4748492-2 (Version None)
Quarter: 2005Q3

REPORT INFORMATION
  Report Type: 
  Country: None (occurrence: None)
  Receive Date: 20050819
  Receipt Date: 20040726
  Transmission Date: 20060218
  Serious: Yes (Hospitalization)
  Sender: FDA-Public Use
  Company Number: JP-SP-2004-02843

PATIENT
  Age: 76 Year
  Sex: Male

DRUGS (7)
  1. IMMUCYST [Suspect]
     Indication: BLADDER CANCER
     Route: 043
     Dates: start: 20040607, end: 20040712
  2. DOXIFLURIDINE [Concomitant]
     Indication: BLADDER CANCER
     Route: 048
     Dates: start: 20040510, end: 20040711
  3. AMLODIPINE BESYLATE [Concomitant]
     Indication: HYPERTENSION
     Route: 048
     Dates: start: 20030129
  4. TOCOPHEROL CONCENTRATE CAP [Concomitant]
     Route: 048
     Dates: start: 20030611
  5. ASPIRIN [Concomitant]
     Route: 048
     Dates: start: 20030129
  6. RANITIDINE HYDROCHLORIDE [Concomitant]
     Indication: GASTRIC ULCER
     Route: 048
     Dates: start: 20031022
  7. ZOLPIDEM TARTRATE [Concomitant]
     Indication: INSOMNIA
     Route: 048
     Dates: start: 20040204

REACTIONS (4)
  - COUGH [None]
  - DYSPNOEA [None]
  - PNEUMONIA [None]
  - PYREXIA [None]
